FAERS Safety Report 9834059 (Version 1)
Quarter: 2014Q1

REPORT INFORMATION
  Report Type: Spontaneous
  Country: FR (occurrence: FR)
  Receive Date: 20140122
  Receipt Date: 20140122
  Transmission Date: 20141002
  Serious: Yes (Hospitalization)
  Sender: FDA-Public Use
  Company Number: FR-009507513-1401FRA004722

PATIENT
  Age: 88 Year
  Sex: Male

DRUGS (2)
  1. ORGARAN [Suspect]
     Indication: HEPARIN-INDUCED THROMBOCYTOPENIA
     Dosage: UNK
     Dates: start: 20131210, end: 20131213
  2. COUMADIN [Concomitant]
     Dosage: UNK
     Route: 048
     Dates: start: 20131204, end: 20131210

REACTIONS (2)
  - Deep vein thrombosis [Recovering/Resolving]
  - Heparin-induced thrombocytopenia [Recovered/Resolved]
